FAERS Safety Report 5236738-6 (Version None)
Quarter: 2007Q1

REPORT INFORMATION
  Report Type: 
  Country: None (occurrence: None)
  Receive Date: 20061208
  Receipt Date: 20050124
  Transmission Date: 20070707
  Serious: Yes (Other)
  Sender: FDA-Public Use
  Company Number: 2005UW01266

PATIENT

DRUGS (3)
  1. CRESTOR [Suspect]
     Dosage: 10 MG
  2. GLUCOPHAGE - SLOW RELEASE [Suspect]
  3. AMARYL [Suspect]

REACTIONS (2)
  - BLOOD GLUCOSE INCREASED [None]
  - DRUG INTERACTION [None]
